FAERS Safety Report 10345153 (Version 4)
Quarter: 2015Q2

REPORT INFORMATION
  Report Type: Report from Study
  Country: US (occurrence: US)
  Receive Date: 20140728
  Receipt Date: 20150605
  Transmission Date: 20150821
  Serious: Yes (Hospitalization, Other)
  Sender: FDA-Public Use
  Company Number: US-ALEXION-A201402882

PATIENT

DRUGS (1)
  1. SOLIRIS [Suspect]
     Active Substance: ECULIZUMAB
     Indication: PAROXYSMAL NOCTURNAL HAEMOGLOBINURIA
     Dosage: UNK
     Route: 042
     Dates: start: 201407

REACTIONS (10)
  - Staphylococcal infection [Unknown]
  - Platelet count decreased [Unknown]
  - Headache [Recovered/Resolved]
  - Pyrexia [Recovering/Resolving]
  - Viral infection [Recovering/Resolving]
  - Restless legs syndrome [Recovering/Resolving]
  - Blood count abnormal [Unknown]
  - Headache [Unknown]
  - Unevaluable event [Unknown]
  - Device related infection [Unknown]

NARRATIVE: CASE EVENT DATE: 20140717
